FAERS Safety Report 6450815-3 (Version None)
Quarter: 2009Q4

REPORT INFORMATION
  Report Type: 
  Country: None (occurrence: None)
  Receive Date: 20091123
  Receipt Date: 20090224
  Transmission Date: 20100525
  Serious: Yes (Other)
  Sender: FDA-Public Use
  Company Number: US-AMGEN-QUU334132

PATIENT
  Sex: Male
  Weight: 66.3 kg

DRUGS (7)
  1. ENBREL [Suspect]
     Indication: PSORIATIC ARTHROPATHY
     Route: 058
     Dates: start: 20050414
  2. ENBREL [Suspect]
     Indication: PSORIASIS
  3. PAXIL [Concomitant]
  4. NEXIUM [Concomitant]
  5. ETODOLAC [Concomitant]
  6. REMERON [Concomitant]
  7. LIPITOR [Concomitant]

REACTIONS (2)
  - COUGH [None]
  - SARCOIDOSIS [None]
